FAERS Safety Report 9143741 (Version 1)
Quarter: 2013Q1

REPORT INFORMATION
  Report Type: Spontaneous
  Country: FR (occurrence: FR)
  Receive Date: 20130306
  Receipt Date: 20130306
  Transmission Date: 20140127
  Serious: Yes (Hospitalization)
  Sender: FDA-Public Use
  Company Number: FR-EISAI INC-E7389-03592-SPO-FR

PATIENT
  Age: 50 Year
  Sex: Female

DRUGS (2)
  1. HALAVEN [Suspect]
     Indication: BREAST CANCER
     Route: 041
     Dates: start: 20130108
  2. GRANOCYTE 34 [Concomitant]
     Route: 065
     Dates: start: 20130108

REACTIONS (1)
  - Pulmonary embolism [Recovered/Resolved]
